FAERS Safety Report 4684096-8 (Version None)
Quarter: 2005Q2

REPORT INFORMATION
  Report Type: 
  Country: None (occurrence: None)
  Receive Date: 20050527
  Receipt Date: 20040511
  Transmission Date: 20051028
  Serious: Yes (Other)
  Sender: FDA-Public Use
  Company Number: 04-169-0967

PATIENT
  Age: 49 Year
  Sex: Female
  Weight: 59.4212 kg

DRUGS (1)
  1. LEUCOVORIN CALCIUM [Suspect]
     Indication: COLORECTAL CANCER
     Dosage: EVERY 2 WKS IV
     Route: 042
     Dates: start: 20040330

REACTIONS (3)
  - HYPERSENSITIVITY [None]
  - RASH PRURITIC [None]
  - URTICARIA [None]
